FAERS Safety Report 20794279 (Version 1)
Quarter: 2022Q2

REPORT INFORMATION
  Report Type: Report from Study
  Country: US (occurrence: US)
  Receive Date: 20220506
  Receipt Date: 20220506
  Transmission Date: 20220721
  Serious: No
  Sender: FDA-Public Use
  Company Number: US-BRISTOL-MYERS SQUIBB COMPANY-2022-022791

PATIENT
  Age: 19 Year
  Sex: Female
  Weight: 78.02 kg

DRUGS (2)
  1. ZEPOSIA [Suspect]
     Active Substance: OZANIMOD HYDROCHLORIDE
     Indication: Colitis ulcerative
     Dosage: DOSE: 0.23 MILLIGRAM, FREQ: DAILY
     Route: 048
     Dates: start: 20220414
  2. ZEPOSIA [Suspect]
     Active Substance: OZANIMOD HYDROCHLORIDE
     Dosage: DOSE: 0.92 MILLIGRAM, FREQ: DAILY
     Route: 048
     Dates: start: 20211029

REACTIONS (6)
  - Pustule [Unknown]
  - Rash [Unknown]
  - Malaise [Unknown]
  - Herpes zoster [Unknown]
  - Back pain [Unknown]
  - Neck pain [Unknown]
